FAERS Safety Report 8760136 (Version 1)
Quarter: 2012Q4

REPORT INFORMATION
  Report Type: 
  Country: US (occurrence: US)
  Receive Date: 20120829
  Receipt Date: 20120829
  Transmission Date: 20130627
  Serious: Yes (Hospitalization)
  Sender: FDA-Public Use
  Company Number: US-ROCHE-1102786

PATIENT
  Age: 61 Year
  Sex: Female
  Weight: 52.21 kg

DRUGS (2)
  1. BEVACIZUMAB [Suspect]
     Indication: OVARIAN CANCER RECURRENT
     Route: 042
     Dates: start: 20120312
  2. EVEROLIMUS [Suspect]
     Indication: OVARIAN CANCER RECURRENT
     Dates: start: 20120312

REACTIONS (3)
  - Oedema peripheral [Unknown]
  - Thrombosis [Unknown]
  - Pain [Unknown]
